FAERS Safety Report 11615739 (Version 5)
Quarter: 2016Q2

REPORT INFORMATION
  Report Type: Report from Study
  Country: US (occurrence: US)
  Receive Date: 20151009
  Receipt Date: 20160502
  Transmission Date: 20160815
  Serious: Yes (Other)
  Sender: FDA-Public Use
  Company Number: US-AMGEN-USASL2015104737

PATIENT
  Age: 64 Year
  Sex: Female

DRUGS (4)
  1. KYPROLIS [Suspect]
     Active Substance: CARFILZOMIB
     Dosage: 33 UNIT, UNK
     Route: 065
  2. METOPROLOL. [Concomitant]
     Active Substance: METOPROLOL
     Dosage: UNK
  3. DEXAMETHASONE. [Concomitant]
     Active Substance: DEXAMETHASONE
     Dosage: UNK
  4. KYPROLIS [Suspect]
     Active Substance: CARFILZOMIB
     Indication: PLASMA CELL MYELOMA
     Dosage: 44 UNIT, UNK
     Route: 065
     Dates: start: 20150924

REACTIONS (14)
  - Adverse reaction [Unknown]
  - Joint injury [Unknown]
  - Nausea [Not Recovered/Not Resolved]
  - Neoplasm malignant [Unknown]
  - Chest pain [Unknown]
  - Back pain [Recovering/Resolving]
  - Fall [Unknown]
  - Heart rate decreased [Unknown]
  - Cardiac function test abnormal [Unknown]
  - Dyspnoea exertional [Not Recovered/Not Resolved]
  - Gait disturbance [Unknown]
  - Walking aid user [Unknown]
  - Somnolence [Recovering/Resolving]
  - Pyrexia [Unknown]

NARRATIVE: CASE EVENT DATE: 2015
